FAERS Safety Report 7440164-9 (Version None)
Quarter: 2011Q2

REPORT INFORMATION
  Report Type: 
  Country: None (occurrence: None)
  Receive Date: 20110427
  Receipt Date: 20110421
  Transmission Date: 20111010
  Serious: Yes (Hospitalization)
  Sender: FDA-Public Use
  Company Number: NL-MPIJNJ-2011-00467

PATIENT

DRUGS (7)
  1. DEXAMETHASONE [Suspect]
     Indication: MULTIPLE MYELOMA
     Dosage: UNK
     Route: 065
     Dates: start: 20090717, end: 20091010
  2. CYCLOPHOSPHAMIDE [Suspect]
     Indication: MULTIPLE MYELOMA
     Dosage: UNK
     Route: 065
     Dates: start: 20090717, end: 20091015
  3. HYDROCHLOROTHIAZIDE [Concomitant]
     Indication: HYPERTENSION
     Dosage: 12.5 MG, UNK
     Route: 048
     Dates: end: 20091112
  4. FENTANYL [Concomitant]
     Indication: PAIN
     Dosage: 12 UG, UNK
     Route: 062
     Dates: end: 20091112
  5. METOCLOPRAMIDE [Concomitant]
     Dosage: 10 MG, UNK
     Route: 048
     Dates: end: 20091112
  6. ESOMEPRAZOL                        /01479302/ [Concomitant]
     Indication: HYPERTENSION
     Dosage: 20 MG, UNK
     Route: 048
     Dates: end: 20091112
  7. VELCADE [Suspect]
     Indication: MULTIPLE MYELOMA
     Dosage: UNK
     Route: 065
     Dates: start: 20090717, end: 20091009

REACTIONS (2)
  - VOMITING [None]
  - DIARRHOEA [None]
